FAERS Safety Report 18437770 (Version 1)
Quarter: 2020Q4

REPORT INFORMATION
  Report Type: Report from Study
  Country: AU (occurrence: AU)
  Receive Date: 20201028
  Receipt Date: 20201028
  Transmission Date: 20210114
  Serious: Yes (Hospitalization)
  Sender: FDA-Public Use
  Company Number: AU-SA-2019SA047996

PATIENT

DRUGS (21)
  1. ISATUXIMAB [Suspect]
     Active Substance: ISATUXIMAB
     Dosage: 10 MG/KG, QW
     Route: 042
     Dates: start: 20190205, end: 20190205
  2. DEXAMETHASONE. [Suspect]
     Active Substance: DEXAMETHASONE
     Indication: PLASMA CELL MYELOMA
     Dosage: 20 MG, DAYS 1, 2, 4, 5, 8, 9, 11, 12, 15, 22, 23, 25, 26, 29, 30, 32, AND 33
     Route: 048
     Dates: start: 20190209, end: 20190209
  3. DEXAMETHASONE. [Suspect]
     Active Substance: DEXAMETHASONE
     Dosage: 20 MG, DAYS OF ISATUXIMAB ADMINISTRATION
     Route: 042
     Dates: start: 20190205, end: 20190205
  4. PANADOL [Concomitant]
     Active Substance: ACETAMINOPHEN
     Indication: PROPHYLAXIS
     Dosage: UNK UNK, UNK
     Route: 048
     Dates: start: 201811
  5. RANITIDINE. [Concomitant]
     Active Substance: RANITIDINE
     Indication: PROPHYLAXIS
     Dosage: 50 MG, 1X
     Route: 042
     Dates: start: 20190205, end: 20190205
  6. PROMETHAZINE [Concomitant]
     Active Substance: PROMETHAZINE HYDROCHLORIDE
     Indication: PROPHYLAXIS
     Dosage: 25 MG, 1X
     Route: 042
     Dates: start: 20190205, end: 20190205
  7. ISATUXIMAB [Suspect]
     Active Substance: ISATUXIMAB
     Indication: PLASMA CELL MYELOMA
     Dosage: 10 MG/KG, QW
     Route: 042
     Dates: start: 20190212, end: 20190212
  8. COLOXYL WITH SENNA [Concomitant]
     Active Substance: DOCUSATE SODIUM\SENNOSIDES A AND B
     Indication: PROPHYLAXIS
     Dosage: UNK UNK, UNK
     Route: 048
     Dates: start: 2017, end: 20190211
  9. PROMETHAZINE [Concomitant]
     Active Substance: PROMETHAZINE HYDROCHLORIDE
     Dosage: 12.5 MG, 1X
     Route: 042
     Dates: start: 20190205, end: 20190205
  10. BORTEZOMIB. [Suspect]
     Active Substance: BORTEZOMIB
     Indication: PLASMA CELL MYELOMA
     Dosage: 1.3 MG/M2, DAYS 1, 4, 8, 11, 22, 25, 29, AND 32
     Route: 058
     Dates: start: 20190208, end: 20190208
  11. CIPROFLOXACIN. [Concomitant]
     Active Substance: CIPROFLOXACIN
     Indication: PROPHYLAXIS
     Dosage: UNK UNK, UNK
     Route: 048
     Dates: start: 20190205
  12. BORTEZOMIB. [Suspect]
     Active Substance: BORTEZOMIB
     Dosage: 1.3 MG/M2, DAYS 1, 4, 8, 11, 22, 25, 29, AND 32
     Route: 058
     Dates: start: 20190205, end: 20190205
  13. AMITRIPTYLINE [Concomitant]
     Active Substance: AMITRIPTYLINE
     Indication: PROPHYLAXIS
     Dosage: UNK
     Route: 048
     Dates: start: 201809, end: 20190222
  14. ALLOPURINOL. [Concomitant]
     Active Substance: ALLOPURINOL
     Indication: PROPHYLAXIS
     Dosage: UNK
     Route: 048
     Dates: start: 20190205, end: 20190211
  15. ASPIRIN [ACETYLSALICYLIC ACID] [Concomitant]
     Active Substance: ASPIRIN
     Indication: PROPHYLAXIS
     Dosage: UNK UNK, UNK
     Route: 048
     Dates: start: 20190205
  16. LENALIDOMIDE [Suspect]
     Active Substance: LENALIDOMIDE
     Indication: PLASMA CELL MYELOMA
     Dosage: 25 MG, QD
     Route: 048
  17. LENALIDOMIDE [Suspect]
     Active Substance: LENALIDOMIDE
     Dosage: 25 MG, QD
     Route: 048
     Dates: start: 20190205, end: 20190211
  18. MULTIVITAMINS [VITAMINS NOS] [Concomitant]
     Active Substance: VITAMINS
     Indication: PROPHYLAXIS
     Dosage: UNK UNK, UNK
     Route: 048
     Dates: start: 1990, end: 20190205
  19. TIBOLONE [Concomitant]
     Active Substance: TIBOLONE
     Indication: PROPHYLAXIS
     Dosage: UNK UNK, UNK
     Route: 048
     Dates: start: 1992
  20. COLOXYL WITH SENNA [Concomitant]
     Active Substance: DOCUSATE SODIUM\SENNOSIDES A AND B
     Dosage: UNK
     Route: 048
     Dates: start: 20190212
  21. VALACICLOVIR [Concomitant]
     Active Substance: VALACYCLOVIR HYDROCHLORIDE
     Indication: PROPHYLAXIS
     Dosage: UNK UNK, UNK
     Route: 048
     Dates: start: 20190205

REACTIONS (1)
  - Ileus [Recovered/Resolved]

NARRATIVE: CASE EVENT DATE: 20190218
